FAERS Safety Report 9009126 (Version 1)
Quarter: 2013Q1

REPORT INFORMATION
  Report Type: Spontaneous
  Country: US (occurrence: US)
  Receive Date: 20130111
  Receipt Date: 20130111
  Transmission Date: 20140127
  Serious: No
  Sender: FDA-Public Use
  Company Number: US-GLAXOSMITHKLINE-A1002911A

PATIENT
  Age: 58 Year
  Sex: Male

DRUGS (3)
  1. JALYN [Suspect]
     Indication: BENIGN PROSTATIC HYPERPLASIA
     Dosage: 1CAP PER DAY
     Route: 048
     Dates: start: 201210, end: 201210
  2. LIVALO [Concomitant]
  3. MELOXICAM [Concomitant]

REACTIONS (1)
  - Constipation [Recovered/Resolved]
